FAERS Safety Report 8664609 (Version 6)
Quarter: 2015Q4

REPORT INFORMATION
  Report Type: Spontaneous
  Country: US (occurrence: US)
  Receive Date: 20120713
  Receipt Date: 20151225
  Transmission Date: 20160305
  Serious: Yes (Death, Hospitalization)
  Sender: FDA-Public Use
  Company Number: US-JNJFOC-20120701486

PATIENT
  Age: 0 Year
  Sex: Male
  Weight: 3.3 kg

DRUGS (8)
  1. ACETAMINOPHEN. [Suspect]
     Active Substance: ACETAMINOPHEN
     Indication: POSTOPERATIVE ANALGESIA
     Dosage: EVERY 6 HOURS FOR 72 HOURS
     Route: 054
     Dates: start: 20090205, end: 20090208
  2. INFANTS TYLENOL [Suspect]
     Active Substance: ACETAMINOPHEN
     Indication: PRODUCT USED FOR UNKNOWN INDICATION
     Route: 048
     Dates: start: 20090216
  3. INFANTS TYLENOL [Suspect]
     Active Substance: ACETAMINOPHEN
     Route: 048
  4. GENTAMICIN. [Concomitant]
     Active Substance: GENTAMICIN
     Indication: INFECTION PROPHYLAXIS
     Route: 042
     Dates: start: 20090204, end: 20090211
  5. MORPHINE SULFATE. [Concomitant]
     Active Substance: MORPHINE SULFATE
     Indication: PRODUCT USED FOR UNKNOWN INDICATION
     Route: 042
     Dates: start: 20090204, end: 20090208
  6. TYLENOL [Suspect]
     Active Substance: ACETAMINOPHEN
     Indication: POSTOPERATIVE ANALGESIA
     Dosage: EVERY 6 HOURS FOR 72 HOURS
     Route: 054
     Dates: start: 20090205, end: 20090208
  7. AMPICILLIN [Concomitant]
     Active Substance: AMPICILLIN
     Indication: INFECTION PROPHYLAXIS
     Route: 042
     Dates: start: 20090204, end: 20090211
  8. SIMETHICONE (DIMETHICONE) [Concomitant]
     Active Substance: DIMETHICONE
     Indication: PRODUCT USED FOR UNKNOWN INDICATION
     Dosage: WHEN NECESSARY
     Route: 065

REACTIONS (21)
  - Respiratory failure [Fatal]
  - Haematemesis [Unknown]
  - Hepatomegaly [Fatal]
  - Metabolic acidosis [Fatal]
  - Pleural effusion [Fatal]
  - Multi-organ failure [Fatal]
  - Renal failure [Fatal]
  - Sepsis [None]
  - Hepatic encephalopathy [Fatal]
  - Haematochezia [Fatal]
  - Cerebral haematoma [Fatal]
  - Disseminated intravascular coagulation [None]
  - Necrosis [Fatal]
  - Coagulopathy [Fatal]
  - Splenomegaly [Fatal]
  - Generalised oedema [Fatal]
  - Hypoglycaemia [None]
  - Acute hepatic failure [Fatal]
  - Product quality issue [Unknown]
  - Pericardial effusion [Fatal]
  - Lactic acidosis [None]

NARRATIVE: CASE EVENT DATE: 200902
